FAERS Safety Report 8538533-9 (Version None)
Quarter: 2012Q3

REPORT INFORMATION
  Report Type: 
  Country: None (occurrence: None)
  Receive Date: 20120718
  Receipt Date: 20120718
  Transmission Date: 20120928
  Serious: Yes (Hospitalization, Other)
  Sender: FDA-Public Use
  Company Number: None

PATIENT
  Sex: Female
  Weight: 72.5755 kg

DRUGS (1)
  1. SULFAMETHOXAZOLE AND TRIMETHOPRIM [Suspect]
     Indication: INFECTION
     Dosage: 1 TABLET TWICE DAILY 1 WK ; ONCE DAILY 5 DAYS
     Dates: start: 20120503, end: 20120514

REACTIONS (10)
  - CHILLS [None]
  - MYALGIA [None]
  - CONFUSIONAL STATE [None]
  - RASH [None]
  - ORAL MUCOSAL BLISTERING [None]
  - SKIN DISCOLOURATION [None]
  - CHROMATURIA [None]
  - LIP SWELLING [None]
  - OEDEMA PERIPHERAL [None]
  - GAIT DISTURBANCE [None]
